FAERS Safety Report 21779146 (Version 3)
Quarter: 2023Q1

REPORT INFORMATION
  Report Type: Report from Study
  Country: US (occurrence: US)
  Receive Date: 20221226
  Receipt Date: 20230324
  Transmission Date: 20230418
  Serious: Yes (Other)
  Sender: FDA-Public Use
  Company Number: US-TAKEDA-2022TUS099748

PATIENT
  Sex: Male
  Weight: 77 kg

DRUGS (1)
  1. BRIGATINIB [Suspect]
     Active Substance: BRIGATINIB
     Indication: Lung neoplasm malignant
     Dosage: 120 MILLIGRAM, QD
     Route: 048
     Dates: start: 20221221

REACTIONS (7)
  - Lung neoplasm malignant [Unknown]
  - Seizure [Unknown]
  - Central nervous system lesion [Unknown]
  - Dysphagia [Unknown]
  - Blood pressure increased [Unknown]
  - Diarrhoea [Unknown]
  - Paraesthesia [Unknown]
